FAERS Safety Report 16446578 (Version 1)
Quarter: 2019Q2

REPORT INFORMATION
  Report Type: Spontaneous
  Country: IT (occurrence: IT)
  Receive Date: 20190618
  Receipt Date: 20190618
  Transmission Date: 20190711
  Serious: Yes (Other)
  Sender: FDA-Public Use
  Company Number: IT-MYLANLABS-2019M1057443

PATIENT
  Age: 62 Year
  Sex: Female

DRUGS (3)
  1. INFLUENZA VACCINE [Interacting]
     Active Substance: INFLUENZA VIRUS VACCINE
     Indication: INFLUENZA IMMUNISATION
     Dosage: UNK
  2. SIMVASTATIN. [Suspect]
     Active Substance: SIMVASTATIN
     Indication: PRODUCT USED FOR UNKNOWN INDICATION
     Dosage: UNK
  3. SULINDAC. [Concomitant]
     Active Substance: SULINDAC
     Dosage: UNK

REACTIONS (6)
  - Guillain-Barre syndrome [Recovered/Resolved]
  - Asthenia [Recovered/Resolved]
  - Myopathy [Recovered/Resolved]
  - Pain [Recovered/Resolved]
  - Drug interaction [Unknown]
  - Myasthenic syndrome [Recovered/Resolved]
